FAERS Safety Report 19907784 (Version 1)
Quarter: 2021Q4

REPORT INFORMATION
  Report Type: Spontaneous
  Country: US (occurrence: US)
  Receive Date: 20211001
  Receipt Date: 20211001
  Transmission Date: 20220303
  Serious: No
  Sender: FDA-Public Use
  Company Number: US-BAYER-2021A221064

PATIENT
  Age: 63 Year
  Sex: Female

DRUGS (1)
  1. KERENDIA [Suspect]
     Active Substance: FINERENONE
     Dosage: 10 MG, PATIENT WAS ON  2-3 WEEKS OF KERENDIA 10 MG SAMPLE

REACTIONS (1)
  - Paraesthesia [None]
